FAERS Safety Report 7615663-7 (Version None)
Quarter: 2011Q3

REPORT INFORMATION
  Report Type: 
  Country: None (occurrence: None)
  Receive Date: 20110711
  Receipt Date: 20110628
  Transmission Date: 20111222
  Serious: Yes (Death)
  Sender: FDA-Public Use
  Company Number: UTC-008248

PATIENT
  Age: 68 Year
  Sex: Male
  Weight: 109 kg

DRUGS (2)
  1. DIURETICS (DIURETICS) [Concomitant]
  2. TYVASO [Suspect]
     Indication: PULMONARY ARTERIAL HYPERTENSION
     Dosage: 96 MCG (24 MC, 4 IN 1 D), INHALATION
     Route: 055
     Dates: start: 20100913

REACTIONS (1)
  - DEATH [None]
